FAERS Safety Report 6999906-9 (Version None)
Quarter: 2010Q3

REPORT INFORMATION
  Report Type: 
  Country: None (occurrence: None)
  Receive Date: 20100920
  Receipt Date: 20100331
  Transmission Date: 20110219
  Serious: Yes (Other)
  Sender: FDA-Public Use
  Company Number: US-ASTRAZENECA-2009SE23885

PATIENT
  Age: 14820 Day
  Sex: Male
  Weight: 117 kg

DRUGS (6)
  1. SEROQUEL [Suspect]
     Indication: AFFECTIVE DISORDER
     Route: 048
     Dates: start: 20060823
  2. SEROQUEL [Suspect]
     Indication: INSOMNIA
     Route: 048
     Dates: start: 20060823
  3. LITHIUM /ESKALITH CR [Concomitant]
     Dates: start: 20060101, end: 20060911
  4. LITHIUM /ESKALITH CR [Concomitant]
     Dosage: 300 MG QAM AND 600 MG QHS, 900 MG
     Dates: start: 20060823
  5. DEPAKOTE ER [Concomitant]
     Indication: AFFECTIVE DISORDER
     Dates: start: 20060823
  6. SALSALATE [Concomitant]
     Indication: PAIN
     Dates: start: 20060823

REACTIONS (3)
  - DIABETES INSIPIDUS [None]
  - DIABETES MELLITUS [None]
  - HYPERGLYCAEMIA [None]
